FAERS Safety Report 22314779 (Version 1)
Quarter: 2023Q2

REPORT INFORMATION
  Report Type: Spontaneous
  Country: CN (occurrence: CN)
  Receive Date: 20230512
  Receipt Date: 20230512
  Transmission Date: 20230722
  Serious: Yes (Hospitalization, Other)
  Sender: FDA-Public Use
  Company Number: None

PATIENT
  Age: 9 Month
  Sex: Female

DRUGS (1)
  1. BLEOMYCIN [Suspect]
     Active Substance: BLEOMYCIN SULFATE
     Indication: Hypertrophy

REACTIONS (1)
  - Extremity necrosis [Recovered/Resolved]
